FAERS Safety Report 5262838-0 (Version None)
Quarter: 2007Q1

REPORT INFORMATION
  Report Type: 
  Country: None (occurrence: None)
  Receive Date: 20070312
  Receipt Date: 20070307
  Transmission Date: 20070707
  Serious: Yes (Hospitalization)
  Sender: FDA-Public Use
  Company Number: AU-BRISTOL-MYERS SQUIBB COMPANY-13704945

PATIENT
  Age: 55 Year
  Sex: Female

DRUGS (2)
  1. CISPLATIN [Suspect]
     Indication: GASTRIC CANCER
     Route: 042
     Dates: start: 20070207
  2. FLUOROURACIL [Suspect]
     Indication: GASTRIC CANCER
     Route: 041
     Dates: start: 20070207

REACTIONS (1)
  - MUCOSAL INFLAMMATION [None]
